FAERS Safety Report 5150027-X (Version None)
Quarter: 2006Q4

REPORT INFORMATION
  Report Type: 
  Country: None (occurrence: None)
  Receive Date: 20060918
  Receipt Date: 20060509
  Transmission Date: 20070319
  Serious: Yes (Other)
  Sender: FDA-Public Use
  Company Number: US-JNJFOC-20060502506

PATIENT
  Age: 57 Year
  Sex: Female
  Weight: 136.0791 kg

DRUGS (2)
  1. TOPAMAX [Suspect]
     Indication: WEIGHT DECREASED
     Dosage: 50 MG, 3 IN 1 DAY, ORAL
     Route: 048
     Dates: start: 20040101, end: 20040101
  2. OXYCODONE HCL [Concomitant]

REACTIONS (4)
  - CATARACT [None]
  - DIZZINESS [None]
  - FATIGUE [None]
  - GLAUCOMA [None]
